FAERS Safety Report 4563909-4 (Version None)
Quarter: 2005Q1

REPORT INFORMATION
  Report Type: 
  Country: None (occurrence: None)
  Receive Date: 20050112
  Receipt Date: 20050112
  Transmission Date: 20050727
  Serious: No
  Sender: FDA-Public Use
  Company Number: None

PATIENT
  Sex: Male

DRUGS (2)
  1. AZULFIDINE [Suspect]
     Indication: ARTHRITIS
     Dosage: 1000 MG THREE TIMES DAILY BY MOUTH
  2. AZULFIDINE [Suspect]
     Indication: COLITIS ULCERATIVE
     Dosage: 1000 MG THREE TIMES DAILY BY MOUTH

REACTIONS (3)
  - DRUG INEFFECTIVE [None]
  - PHARMACEUTICAL PRODUCT COMPLAINT [None]
  - STOMACH DISCOMFORT [None]
